FAERS Safety Report 24691735 (Version 1)
Quarter: 2024Q4

REPORT INFORMATION
  Report Type: Spontaneous
  Country: CN (occurrence: CN)
  Receive Date: 20241203
  Receipt Date: 20241203
  Transmission Date: 20250115
  Serious: Yes (Life-Threatening, Other)
  Sender: BAYER HEALTHCARE PHARMACEUTICALS INC.
  Company Number: CN-BAYER-2024A169679

PATIENT
  Age: 81 Year
  Sex: Male

DRUGS (1)
  1. ULTRAVIST [Suspect]
     Active Substance: IOPROMIDE
     Indication: Computerised tomogram
     Dosage: 90 ML IN 250ML 0.9% SODIUM CHLORIDE INJECTION, ONCE
     Route: 041
     Dates: start: 20240612, end: 20240612

REACTIONS (4)
  - Contrast media allergy [Recovering/Resolving]
  - Dyspnoea [Recovering/Resolving]
  - Altered state of consciousness [None]
  - Blood pressure increased [None]

NARRATIVE: CASE EVENT DATE: 20240612
